FAERS Safety Report 13389536 (Version 2)
Quarter: 2017Q2

REPORT INFORMATION
  Report Type: Spontaneous
  Country: CA (occurrence: CA)
  Receive Date: 20170331
  Receipt Date: 20170417
  Transmission Date: 20170830
  Serious: Yes (Death, Life-Threatening, Hospitalization, Other)
  Sender: FDA-Public Use
  Company Number: CA-SUN PHARMACEUTICAL INDUSTRIES LTD-2017US-136861

PATIENT
  Age: 58 Year
  Sex: Female

DRUGS (2)
  1. CISPLATIN. [Suspect]
     Active Substance: CISPLATIN
     Indication: CHOLANGIOCARCINOMA
     Dosage: 20 MG/M2 ON DAYS1 AND 8 OF CYCLE 2 TO 6
     Route: 042
     Dates: start: 2014
  2. GEMCITABINE [Suspect]
     Active Substance: GEMCITABINE\GEMCITABINE HYDROCHLORIDE
     Indication: CHOLANGIOCARCINOMA
     Dosage: 1000MG/M2 ON DAYS 1 AND AND 8 OF ALL CYCLES.
     Route: 042
     Dates: start: 2014

REACTIONS (3)
  - Hypomagnesaemia [Unknown]
  - Posterior reversible encephalopathy syndrome [Recovering/Resolving]
  - Hypokalaemia [Unknown]
